FAERS Safety Report 19681228 (Version 1)
Quarter: 2021Q3

REPORT INFORMATION
  Report Type: Spontaneous
  Country: US (occurrence: US)
  Receive Date: 20210810
  Receipt Date: 20210810
  Transmission Date: 20211014
  Serious: No
  Sender: FDA-Public Use
  Company Number: US-IGSA-BIG0010903

PATIENT
  Sex: Female

DRUGS (31)
  1. HYDROCORTICONE [Concomitant]
     Active Substance: HYDROCORTISONE
  2. MUPIROCIN. [Concomitant]
     Active Substance: MUPIROCIN
  3. DEPAKOTE [Concomitant]
     Active Substance: DIVALPROEX SODIUM
     Indication: HEADACHE
     Dosage: UNK UNK, QD
  4. FUROSEMIDE. [Concomitant]
     Active Substance: FUROSEMIDE
  5. AZELASTIN [Concomitant]
  6. CHOLESTYRAMINE. [Concomitant]
     Active Substance: CHOLESTYRAMINE
  7. DEXILANT [Concomitant]
     Active Substance: DEXLANSOPRAZOLE
  8. FLUTICASONE PROPIONATE. [Concomitant]
     Active Substance: FLUTICASONE PROPIONATE
  9. PLAQUENIL                          /00072602/ [Concomitant]
     Active Substance: HYDROXYCHLOROQUINE DIPHOSPHATE
  10. TIZANIDINE HCL [Concomitant]
     Active Substance: TIZANIDINE HYDROCHLORIDE
  11. TRAMADOL. [Concomitant]
     Active Substance: TRAMADOL
  12. GAMUNEX?C [Suspect]
     Active Substance: HUMAN IMMUNOGLOBULIN G
     Indication: HYPOGAMMAGLOBULINAEMIA
     Dosage: 45 GRAM, Q.4WK.
     Route: 042
     Dates: start: 202001
  13. FLOVENT HFA [Concomitant]
     Active Substance: FLUTICASONE PROPIONATE
  14. RETAINE MGD [Concomitant]
     Active Substance: LIGHT MINERAL OIL\MINERAL OIL
  15. FAMOTIDINE. [Concomitant]
     Active Substance: FAMOTIDINE
  16. OMEPRAZOLE. [Concomitant]
     Active Substance: OMEPRAZOLE
  17. TRULANCE [Concomitant]
     Active Substance: PLECANATIDE
  18. GABAPENTIN. [Concomitant]
     Active Substance: GABAPENTIN
  19. PROTEIN [Concomitant]
     Active Substance: PROTEIN
  20. CULTURELLE [Concomitant]
     Active Substance: LACTOBACILLUS RHAMNOSUS
  21. FLUDROCORTISONE [Concomitant]
     Active Substance: FLUDROCORTISONE
  22. MONTELUKAST SODIUM. [Concomitant]
     Active Substance: MONTELUKAST SODIUM
  23. LINZESS [Concomitant]
     Active Substance: LINACLOTIDE
  24. CYMBALTA [Concomitant]
     Active Substance: DULOXETINE HYDROCHLORIDE
  25. LEVOTHYROXINE SODIUM. [Concomitant]
     Active Substance: LEVOTHYROXINE SODIUM
  26. RESTASIS [Concomitant]
     Active Substance: CYCLOSPORINE
  27. WIXELA INHUB [Concomitant]
     Active Substance: FLUTICASONE PROPIONATE\SALMETEROL XINAFOATE
  28. PROBIOTIC 10 [Concomitant]
     Active Substance: DIETARY SUPPLEMENT\PROBIOTICS
  29. KLONOPIN [Concomitant]
     Active Substance: CLONAZEPAM
  30. VITAMIN D                          /00107901/ [Concomitant]
     Active Substance: ERGOCALCIFEROL
  31. ZENPEP [Concomitant]
     Active Substance: PANCRELIPASE AMYLASE\PANCRELIPASE LIPASE\PANCRELIPASE PROTEASE

REACTIONS (1)
  - Nausea [Recovered/Resolved]
